FAERS Safety Report 6047254-6 (Version None)
Quarter: 2009Q1

REPORT INFORMATION
  Report Type: 
  Country: None (occurrence: None)
  Receive Date: 20090122
  Receipt Date: 20090114
  Transmission Date: 20090719
  Serious: Yes (Other)
  Sender: FDA-Public Use
  Company Number: VE-ABBOTT-09P-178-0497915-00

PATIENT
  Age: 21 Year
  Sex: Female
  Weight: 55 kg

DRUGS (4)
  1. SEVOFLURANE [Suspect]
     Indication: MAINTENANCE OF ANAESTHESIA
     Dosage: 2 %
     Route: 055
     Dates: start: 20090113, end: 20090113
  2. FENTANYL [Concomitant]
     Indication: ANALGESIA
     Route: 042
     Dates: start: 20090113, end: 20090113
  3. THIOPENTAL SODIUM [Concomitant]
     Indication: ANAESTHESIA
     Route: 042
     Dates: start: 20090113, end: 20090113
  4. ROCURONIUM BROMIDE [Concomitant]
     Indication: MUSCLE RELAXANT THERAPY
     Route: 042
     Dates: start: 20090113, end: 20090113

REACTIONS (1)
  - EXTRASYSTOLES [None]
